FAERS Safety Report 19639262 (Version 1)
Quarter: 2021Q3

REPORT INFORMATION
  Report Type: Report from Study
  Country: US (occurrence: US)
  Receive Date: 20210730
  Receipt Date: 20210730
  Transmission Date: 20211014
  Serious: No
  Sender: FDA-Public Use
  Company Number: US-ACADIA PHARMACEUTICALS INC.-ACA-2021-PIM-002489

PATIENT
  Age: 82 Year
  Sex: Male
  Weight: 57 kg

DRUGS (8)
  1. NUPLAZID [Suspect]
     Active Substance: PIMAVANSERIN TARTRATE
     Indication: PARKINSON^S DISEASE PSYCHOSIS
     Dosage: 34 MILLIGRAM
     Route: 065
     Dates: start: 202106, end: 2021
  2. NUPLAZID [Suspect]
     Active Substance: PIMAVANSERIN TARTRATE
     Indication: HALLUCINATION
  3. NUPLAZID [Suspect]
     Active Substance: PIMAVANSERIN TARTRATE
     Indication: DELUSION
  4. MEMANTINE. [Concomitant]
     Active Substance: MEMANTINE
  5. BLADDER MEDICATION [Concomitant]
     Active Substance: UNSPECIFIED INGREDIENT
  6. QUETIAPINE. [Suspect]
     Active Substance: QUETIAPINE
     Dosage: 25 MG 4 TABLETS AT BEDTIME
  7. QUETIAPINE. [Suspect]
     Active Substance: QUETIAPINE
     Dosage: UNK
  8. PROSTATE MEDICATION [Concomitant]

REACTIONS (8)
  - Hallucinations, mixed [Recovered/Resolved]
  - Hallucination [Unknown]
  - Crying [Unknown]
  - Delusion [Recovered/Resolved]
  - Dementia [Recovered/Resolved]
  - Drug ineffective [Unknown]
  - Dyspnoea [Recovered/Resolved]
  - Chest pain [Unknown]

NARRATIVE: CASE EVENT DATE: 202106
